FAERS Safety Report 7350208-0 (Version None)
Quarter: 2011Q1

REPORT INFORMATION
  Report Type: 
  Country: None (occurrence: None)
  Receive Date: 20110314
  Receipt Date: 20110303
  Transmission Date: 20110831
  Serious: Yes (Disabling)
  Sender: FDA-Public Use
  Company Number: DK-ASTRAZENECA-2009SE33214

PATIENT
  Age: 12027 Day
  Sex: Female
  Weight: 43 kg

DRUGS (1)
  1. MARCAIN-ADRENALIN [Suspect]
     Indication: LOCAL ANAESTHESIA
     Route: 034
     Dates: start: 20081010, end: 20081010

REACTIONS (4)
  - SENSORY DISTURBANCE [None]
  - MICTURITION DISORDER [None]
  - PARAESTHESIA [None]
  - PAIN [None]
